FAERS Safety Report 24274593 (Version 3)
Quarter: 2024Q4

REPORT INFORMATION
  Report Type: Spontaneous
  Country: US (occurrence: US)
  Receive Date: 20240902
  Receipt Date: 20241125
  Transmission Date: 20250114
  Serious: No
  Sender: SANDOZ
  Company Number: US-SANDOZ-SDZ2024US076933

PATIENT
  Sex: Female
  Weight: 84.354 kg

DRUGS (6)
  1. TREPROSTINIL [Suspect]
     Active Substance: TREPROSTINIL
     Indication: Pulmonary arterial hypertension
     Dosage: 11 NG/KG/MIN (STERILE DILUENT FOR TREPROSTINIL)
     Route: 042
     Dates: start: 20240717
  2. TREPROSTINIL [Suspect]
     Active Substance: TREPROSTINIL
     Dosage: 13 NG/KG/MIN (STERILE DILUENT FOR TREPROSTINIL), CONT
     Route: 042
     Dates: start: 20240717
  3. TREPROSTINIL [Suspect]
     Active Substance: TREPROSTINIL
     Dosage: 14 NG/KG/MIN-(CONTINUOUS)
     Route: 042
     Dates: start: 20240717
  4. BUMETANIDE [Concomitant]
     Active Substance: BUMETANIDE
     Indication: Product used for unknown indication
     Dosage: UNK
     Route: 065
  5. CHLORIDE SODIUM [Concomitant]
     Indication: Product used for unknown indication
     Dosage: UNK
     Route: 065
  6. FIORICET [Concomitant]
     Active Substance: ACETAMINOPHEN\BUTALBITAL\CAFFEINE
     Indication: Product used for unknown indication
     Dosage: UNK
     Route: 065

REACTIONS (7)
  - Catheter site pain [Unknown]
  - Feeling abnormal [Unknown]
  - Oxygen saturation decreased [Unknown]
  - Chest pain [Unknown]
  - Fluid retention [Unknown]
  - Illness [Unknown]
  - Injection site pruritus [Recovered/Resolved]
